FAERS Safety Report 15762006 (Version 1)
Quarter: 2018Q4

REPORT INFORMATION
  Report Type: Spontaneous
  Country: EE (occurrence: EE)
  Receive Date: 20181226
  Receipt Date: 20181226
  Transmission Date: 20190205
  Serious: Yes (Death, Hospitalization)
  Sender: FDA-Public Use
  Company Number: EE-PFIZER INC-2907391

PATIENT
  Age: 72 Year
  Sex: Male

DRUGS (9)
  1. ENBREL [Suspect]
     Active Substance: ETANERCEPT
     Indication: RHEUMATOID ARTHRITIS
     Dosage: 50 MG, FREQ:1 DAY,INTERVAL: 1
     Route: 058
     Dates: start: 20121217
  2. PREDNISOLONE. [Suspect]
     Active Substance: PREDNISOLONE
     Indication: RHEUMATOID ARTHRITIS
     Dosage: 5 MG, FREQ: 1 DAY; INTERVAL: 1
     Route: 048
     Dates: start: 20121217
  3. NORVASC [Concomitant]
     Active Substance: AMLODIPINE BESYLATE
     Indication: HYPERTENSION
     Dosage: 5 MG, FREQ:1 DAY; INTERVAL: 1
     Route: 048
  4. RANIBERL [Concomitant]
     Indication: PRODUCT USED FOR UNKNOWN INDICATION
     Dosage: 150 MG, STRENGTH: 150MG FREQ: 1 DAY; INTERVAL: 1
     Route: 048
  5. DICLOFENAC [Concomitant]
     Active Substance: DICLOFENAC
     Indication: RHEUMATOID ARTHRITIS
     Dosage: 100 MG, FREQ: 1 DAY; INTERVAL: 1
     Route: 065
  6. BETALOC /00376902/ [Concomitant]
     Active Substance: METOPROLOL TARTRATE
     Indication: HYPERTENSION
     Dosage: 50 MG, STRENGTH: 50 MG,FREQ: 1 DAY;INTEVAL: 1
     Route: 048
  7. METHOTREXATE SODIUM. [Suspect]
     Active Substance: METHOTREXATE SODIUM
     Indication: RHEUMATOID ARTHRITIS
     Dosage: 12.5 MG, 1.7857MG, FREQ:1 WEEK,INTERVAL: 1
     Route: 048
     Dates: start: 20121217
  8. BONVIVA [Concomitant]
     Active Substance: IBANDRONATE SODIUM
     Indication: OSTEOPOROSIS
     Dosage: 150 MG, 5 MG, FREQ: 1 MONTH ;INTERVAL: 1
     Route: 048
     Dates: start: 20121217
  9. FOLVERLAN [Concomitant]
     Active Substance: FOLIC ACID
     Indication: PRODUCT USED FOR UNKNOWN INDICATION
     Dosage: 5 MG, FREQ: 1 DAY ; INTERVAL: 1
     Route: 048

REACTIONS (5)
  - Pneumonia [Fatal]
  - Acute respiratory failure [Fatal]
  - Renal failure [Fatal]
  - Cardiac failure acute [Unknown]
  - Sepsis [Unknown]

NARRATIVE: CASE EVENT DATE: 20141212
